FAERS Safety Report 5626105-5 (Version None)
Quarter: 2008Q1

REPORT INFORMATION
  Report Type: 
  Country: None (occurrence: None)
  Receive Date: 20080214
  Receipt Date: 20080131
  Transmission Date: 20080703
  Serious: Yes (Hospitalization, Other)
  Sender: FDA-Public Use
  Company Number: US-AMGEN-US254558

PATIENT
  Sex: Male

DRUGS (12)
  1. ARANESP [Suspect]
     Indication: RENAL FAILURE CHRONIC
     Dates: start: 20050606
  2. PROCRIT [Suspect]
     Indication: RENAL FAILURE CHRONIC
     Dates: start: 20050509
  3. FUROSEMIDE [Concomitant]
  4. ALLOPURINOL [Concomitant]
  5. SPIRONOLACTONE [Concomitant]
  6. INDAPAMIDE [Concomitant]
  7. MIDODRINE HYDROCHLORIDE [Concomitant]
  8. PROCHLORPERAZINE [Concomitant]
  9. LORAZEPAM [Concomitant]
  10. TRIAZOLAM [Concomitant]
  11. DOVONEX [Concomitant]
  12. LIDEX [Concomitant]

REACTIONS (22)
  - ANAEMIA [None]
  - APLASIA PURE RED CELL [None]
  - ATELECTASIS [None]
  - BUNDLE BRANCH BLOCK RIGHT [None]
  - CONFUSIONAL STATE [None]
  - COUGH [None]
  - DIVERTICULUM [None]
  - ECCHYMOSIS [None]
  - EPISTAXIS [None]
  - FATIGUE [None]
  - HEARING IMPAIRED [None]
  - HYPOAESTHESIA [None]
  - IRON DEFICIENCY [None]
  - MUSCULAR WEAKNESS [None]
  - MYALGIA [None]
  - OEDEMA PERIPHERAL [None]
  - PANCYTOPENIA [None]
  - PLEURAL EFFUSION [None]
  - PRURITUS [None]
  - RASH [None]
  - SINUS OPERATION [None]
  - VARICES OESOPHAGEAL [None]
